FAERS Safety Report 8090567-7 (Version None)
Quarter: 2012Q1

REPORT INFORMATION
  Report Type: 
  Country: None (occurrence: None)
  Receive Date: 20120129
  Receipt Date: 20111113
  Transmission Date: 20120608
  Serious: No
  Sender: FDA-Public Use
  Company Number: US-ABBOTT-11P-163-0873770-00

PATIENT
  Age: 53 Year
  Sex: Female

DRUGS (3)
  1. ASACOL [Concomitant]
     Indication: COLITIS ULCERATIVE
  2. HUMIRA [Suspect]
     Indication: COLITIS ULCERATIVE
     Dates: start: 20051201
  3. ACTONEL [Concomitant]
     Indication: BONE DENSITY ABNORMAL
     Dosage: WEEKLY

REACTIONS (3)
  - NASAL CONGESTION [None]
  - RHINITIS [None]
  - RHINORRHOEA [None]
